FAERS Safety Report 8056294-7 (Version None)
Quarter: 2012Q1

REPORT INFORMATION
  Report Type: 
  Country: None (occurrence: None)
  Receive Date: 20120119
  Receipt Date: 20120111
  Transmission Date: 20120608
  Serious: Yes (Other)
  Sender: FDA-Public Use
  Company Number: US-BAYER-2012-003795

PATIENT
  Age: 34 Year
  Sex: Female

DRUGS (2)
  1. DROSPIRENONE AND ETHINYL ESTRADIOL [Suspect]
     Dosage: UNK
     Dates: start: 20051001, end: 20101001
  2. YASMIN [Suspect]
     Dosage: UNK
     Dates: start: 20051001, end: 20101001

REACTIONS (3)
  - INJURY [None]
  - CHOLECYSTITIS [None]
  - PAIN [None]
